FAERS Safety Report 11330785 (Version 1)
Quarter: 2015Q3

REPORT INFORMATION
  Report Type: Spontaneous
  Country: US (occurrence: None)
  Receive Date: 20150731
  Receipt Date: 20150731
  Transmission Date: 20151125
  Serious: No
  Sender: FDA-Public Use
  Company Number: None

PATIENT
  Age: 58 Year
  Sex: Male

DRUGS (7)
  1. OMEPRAZOLE. [Concomitant]
     Active Substance: OMEPRAZOLE
  2. LEVITRA [Concomitant]
     Active Substance: VARDENAFIL HYDROCHLORIDE TRIHYDRATE
  3. TRAMADOL. [Concomitant]
     Active Substance: TRAMADOL
  4. METRONIDAZOL [Concomitant]
     Active Substance: METRONIDAZOLE
  5. SUTENT [Suspect]
     Active Substance: SUNITINIB MALATE
     Indication: RENAL CANCER
     Dosage: X 21
     Route: 048
     Dates: start: 20140618
  6. FLUCONAZOLE. [Concomitant]
     Active Substance: FLUCONAZOLE
  7. AMOXICILLIN. [Concomitant]
     Active Substance: AMOXICILLIN

REACTIONS (3)
  - Pyrexia [None]
  - Headache [None]
  - Pain [None]

NARRATIVE: CASE EVENT DATE: 20150729
